FAERS Safety Report 12922408 (Version 1)
Quarter: 2016Q4

REPORT INFORMATION
  Report Type: Spontaneous
  Country: GB (occurrence: GB)
  Receive Date: 20161109
  Receipt Date: 20161109
  Transmission Date: 20170207
  Serious: Yes (Hospitalization)
  Sender: FDA-Public Use
  Company Number: GB-TEVA-709142ACC

PATIENT
  Sex: Female

DRUGS (3)
  1. ADOPORT (SANDOZ) [Suspect]
     Active Substance: TACROLIMUS
     Route: 065
  2. ZEFFIX (GSK) [Suspect]
     Active Substance: LAMIVUDINE
     Route: 065
  3. MYFENAX [Suspect]
     Active Substance: MYCOPHENOLATE MOFETIL
     Route: 065

REACTIONS (1)
  - Renal disorder [Unknown]
